FAERS Safety Report 9763406 (Version 1)
Quarter: 2013Q4

REPORT INFORMATION
  Report Type: Spontaneous
  Country: US (occurrence: US)
  Receive Date: 20131216
  Receipt Date: 20131216
  Transmission Date: 20140711
  Serious: No
  Sender: FDA-Public Use
  Company Number: US-BIOGENIDEC-2013BI108976

PATIENT
  Age: 43 Year
  Sex: Female

DRUGS (4)
  1. TECFIDERA [Suspect]
     Indication: MULTIPLE SCLEROSIS
     Route: 048
     Dates: start: 20130805
  2. CALCIUM 500 + D [Concomitant]
  3. MOTRIN [Concomitant]
  4. VITAMIN D [Concomitant]

REACTIONS (2)
  - Flatulence [Unknown]
  - Diarrhoea [Unknown]
